FAERS Safety Report 14914450 (Version 1)
Quarter: 2018Q2

REPORT INFORMATION
  Report Type: Spontaneous
  Country: US (occurrence: US)
  Receive Date: 20180501
  Receipt Date: 20180501
  Transmission Date: 20180711
  Serious: Yes (Other)
  Sender: FDA-Public Use
  Company Number: None

PATIENT
  Age: 15 Year
  Sex: Female
  Weight: 27.45 kg

DRUGS (8)
  1. PENICILLIN [Concomitant]
     Active Substance: PENICILLIN
  2. MIRALAX [Suspect]
     Active Substance: POLYETHYLENE GLYCOL 3350
     Indication: CONSTIPATION
     Dosage: ?          QUANTITY:1 1 CAP POWDER;?
     Route: 048
     Dates: end: 20180501
  3. GUANFACINE. [Concomitant]
     Active Substance: GUANFACINE
  4. VITAMIN D [Concomitant]
     Active Substance: CHOLECALCIFEROL
  5. OXYCODONE [Concomitant]
     Active Substance: OXYCODONE
  6. MOTRIN [Concomitant]
     Active Substance: IBUPROFEN
  7. MIRALAX [Concomitant]
     Active Substance: POLYETHYLENE GLYCOL 3350
  8. SERTRALINE [Concomitant]
     Active Substance: SERTRALINE HYDROCHLORIDE

REACTIONS (1)
  - Aggression [None]
